FAERS Safety Report 6375661-0 (Version None)
Quarter: 2009Q3

REPORT INFORMATION
  Report Type: 
  Country: None (occurrence: None)
  Receive Date: 20090918
  Receipt Date: 20090918
  Transmission Date: 20100115
  Serious: Yes (Other)
  Sender: FDA-Public Use
  Company Number: None

PATIENT
  Age: 39 Year
  Sex: Female
  Weight: 59.8748 kg

DRUGS (1)
  1. ULORIC [Suspect]
     Indication: NEPHROLITHIASIS
     Dosage: 1 TABLET DAILY PO
     Route: 048
     Dates: start: 20090824, end: 20090916

REACTIONS (2)
  - VISION BLURRED [None]
  - VISUAL IMPAIRMENT [None]
